FAERS Safety Report 9294920 (Version 1)
Quarter: 2013Q2

REPORT INFORMATION
  Report Type: Spontaneous
  Country: FR (occurrence: FR)
  Receive Date: 20130517
  Receipt Date: 20130517
  Transmission Date: 20140414
  Serious: Yes (Hospitalization)
  Sender: FDA-Public Use
  Company Number: PHHY2013FR047816

PATIENT
  Age: 21 Year
  Sex: Male

DRUGS (10)
  1. EXJADE [Suspect]
     Indication: IRON OVERLOAD
     Dosage: 125 MG, DAILY
     Route: 048
     Dates: start: 201107
  2. DESFERAL [Suspect]
     Dosage: 3 G, 2 PERFUSIONS PER WEEK
     Route: 058
     Dates: start: 201204, end: 201210
  3. FERRIPROX [Suspect]
     Dosage: UNK UKN, UNK
     Route: 048
     Dates: start: 199804, end: 201107
  4. LEVOTHYROX [Concomitant]
     Indication: BLOOD THYROID STIMULATING HORMONE DECREASED
     Dosage: UNK
     Dates: start: 201102
  5. AUGMENTIN [Concomitant]
     Indication: SINUSITIS
     Dosage: UNK UKN, UNK
  6. BIPROFENID [Concomitant]
     Dosage: UNK UKN, UNK
  7. BENZODIAZEPINES [Concomitant]
     Dosage: UNK UKN, UNK
  8. NALBUPHINE [Concomitant]
     Dosage: UNK UKN, UNK
  9. TAZOCILLINE [Concomitant]
     Dosage: UNK UKN, UNK
     Dates: start: 20020131
  10. AMOXICILLIN [Concomitant]
     Dosage: UNK UKN, UNK

REACTIONS (3)
  - Arthropathy [Recovered/Resolved]
  - Intervertebral discitis [Recovered/Resolved]
  - Cholelithiasis [Recovered/Resolved]
